FAERS Safety Report 14977627 (Version 1)
Quarter: 2018Q2

REPORT INFORMATION
  Report Type: Spontaneous
  Country: US (occurrence: US)
  Receive Date: 20180606
  Receipt Date: 20180606
  Transmission Date: 20180711
  Serious: No
  Sender: FDA-Public Use
  Company Number: US-TEVA-797950ACC

PATIENT
  Age: 17 Year
  Sex: Female

DRUGS (1)
  1. JUNEL [Suspect]
     Active Substance: ETHINYL ESTRADIOL\NORETHINDRONE ACETATE
     Indication: MENORRHAGIA
     Dosage: DOSE STRENGTH:  1 MG/20 MCG

REACTIONS (4)
  - Dyspnoea [Unknown]
  - Headache [Unknown]
  - Pain in extremity [Unknown]
  - Hot flush [Unknown]
